FAERS Safety Report 5457632-1 (Version None)
Quarter: 2007Q3

REPORT INFORMATION
  Report Type: 
  Country: None (occurrence: None)
  Receive Date: 20070918
  Receipt Date: 20070123
  Transmission Date: 20080115
  Serious: No
  Sender: FDA-Public Use
  Company Number: US-BOEHRINGER INGELHEIM PHARMACEUTICALS, INC.-2007-BP-00303BP

PATIENT
  Age: 59 Year
  Sex: Male

DRUGS (1)
  1. COMBIVENT [Suspect]
     Indication: LUNG DISORDER
     Dates: start: 20000101

REACTIONS (1)
  - DYSPNOEA [None]
